FAERS Safety Report 13917935 (Version 1)
Quarter: 2017Q3

REPORT INFORMATION
  Report Type: Spontaneous
  Country: US (occurrence: US)
  Receive Date: 20170829
  Receipt Date: 20170829
  Transmission Date: 20171127
  Serious: No
  Sender: FDA-Public Use
  Company Number: US-SA-2016SA159958

PATIENT
  Sex: Male
  Weight: 65.77 kg

DRUGS (8)
  1. DIPHENHYDRAMINE. [Concomitant]
     Active Substance: DIPHENHYDRAMINE
     Indication: PREMEDICATION
     Route: 048
     Dates: start: 20160721
  2. L-M-X [Concomitant]
     Indication: PREMEDICATION
     Route: 041
     Dates: start: 20160721
  3. HYDROCORTISONE. [Concomitant]
     Active Substance: HYDROCORTISONE
     Indication: ANAPHYLACTIC REACTION
     Route: 042
     Dates: start: 20160721
  4. FABRAZYME [Suspect]
     Active Substance: AGALSIDASE BETA
     Indication: LIPIDOSIS
     Route: 041
  5. EPIPEN [Concomitant]
     Active Substance: EPINEPHRINE
     Indication: ANAPHYLACTIC REACTION
     Route: 030
     Dates: start: 20160721
  6. ACETAMINOPHEN. [Concomitant]
     Active Substance: ACETAMINOPHEN
     Indication: PREMEDICATION
     Route: 048
     Dates: start: 20160721
  7. NORMAL SALINE [Concomitant]
     Active Substance: SODIUM CHLORIDE
     Indication: FLUSHING
     Route: 042
     Dates: start: 20160721
  8. TEGRETOL [Concomitant]
     Active Substance: CARBAMAZEPINE
     Route: 048
     Dates: start: 20160520

REACTIONS (1)
  - Chills [Recovered/Resolved]
